FAERS Safety Report 18078600 (Version 1)
Quarter: 2020Q3

REPORT INFORMATION
  Report Type: Spontaneous
  Country: HR (occurrence: HR)
  Receive Date: 20200728
  Receipt Date: 20200728
  Transmission Date: 20201103
  Serious: Yes (Other)
  Sender: FDA-Public Use
  Company Number: HR-TEVA-2020-HR-1805209

PATIENT
  Sex: Female

DRUGS (4)
  1. ESCITALOPRAM [Suspect]
     Active Substance: ESCITALOPRAM OXALATE
     Dosage: ESCITALOPRAM 1.5 TABLETS
     Route: 048
     Dates: start: 20200229, end: 20200229
  2. RIVOTRIL [Suspect]
     Active Substance: CLONAZEPAM
     Route: 048
     Dates: start: 20200229, end: 20200229
  3. PAROXETIN [Suspect]
     Active Substance: PAROXETINE HYDROCHLORIDE
     Route: 048
     Dates: start: 20200229, end: 20200229
  4. TEGRETOL XR [Suspect]
     Active Substance: CARBAMAZEPINE
     Dosage: 18 GRAM ,CARBAMAZEPINE 1.5 TABLETS
     Route: 048
     Dates: start: 20200229, end: 20200229

REACTIONS (3)
  - Intentional overdose [Unknown]
  - Somnolence [Unknown]
  - Suicide attempt [Unknown]

NARRATIVE: CASE EVENT DATE: 20200229
